FAERS Safety Report 6106683-2 (Version None)
Quarter: 2009Q1

REPORT INFORMATION
  Report Type: 
  Country: None (occurrence: None)
  Receive Date: 20090305
  Receipt Date: 20090220
  Transmission Date: 20090719
  Serious: Yes (Hospitalization)
  Sender: FDA-Public Use
  Company Number: 231987K09USA

PATIENT
  Age: 44 Year
  Sex: Female

DRUGS (2)
  1. REBIF [Suspect]
     Indication: MULTIPLE SCLEROSIS
     Dosage: 44 MCG, 3 IN 1 WEEKS, SUBCUTANEOUS
     Route: 058
     Dates: start: 20070926
  2. BACLOFEN PUMP (BACLOFEN) [Concomitant]

REACTIONS (3)
  - BODY TEMPERATURE INCREASED [None]
  - URINARY TRACT INFECTION [None]
  - URTICARIA [None]
